FAERS Safety Report 8008138-7 (Version None)
Quarter: 2011Q4

REPORT INFORMATION
  Report Type: 
  Country: None (occurrence: None)
  Receive Date: 20111227
  Receipt Date: 20111213
  Transmission Date: 20120403
  Serious: Yes (Hospitalization, Other)
  Sender: FDA-Public Use
  Company Number: PHEH2011US011629

PATIENT
  Sex: Female
  Weight: 107.5 kg

DRUGS (17)
  1. FAMOTIDINE [Concomitant]
     Dosage: 20 MG, BID
     Route: 048
  2. NAPROSYN [Concomitant]
  3. LISINOPRIL [Concomitant]
     Dosage: 2.5 MG, UNK
  4. GLEEVEC [Suspect]
     Indication: CHRONIC MYELOID LEUKAEMIA
     Dosage: 400 MG, DAILY
     Route: 048
     Dates: start: 20070219
  5. HYDROCHLOROTHIAZIDE [Concomitant]
     Dosage: 12.5 MG, UNK
  6. METOPROLOL SUCCINATE [Concomitant]
     Dosage: 25 MG, DAILY
     Route: 048
  7. COLACE [Concomitant]
     Dosage: 100 MG, BID
  8. AZITHROMYCIN [Concomitant]
     Dosage: 500 MG, DAILY
     Route: 042
     Dates: start: 20111101
  9. PROMETHAZINE [Concomitant]
  10. SENNA [Concomitant]
  11. IBUPROFEN [Concomitant]
  12. GLEEVEC [Suspect]
     Dosage: 400 MG, DAILY
  13. CEFTRIAXONE [Concomitant]
     Dosage: 1 G, DAILY
     Route: 042
     Dates: start: 20111101
  14. ACETYLSALICYLIC ACID SRT [Concomitant]
     Dosage: 325 MG, DAILY
     Route: 048
  15. GLEEVEC [Suspect]
     Dosage: 200 MG, DAILY
     Route: 048
  16. POTASSIUM [Concomitant]
  17. GLUCOSAMINE [Concomitant]

REACTIONS (21)
  - CHEST PAIN [None]
  - HYPERTENSIVE CARDIOMYOPATHY [None]
  - DILATATION VENTRICULAR [None]
  - ABDOMINAL DISCOMFORT [None]
  - BLOOD PRESSURE INCREASED [None]
  - OROPHARYNGEAL PAIN [None]
  - HAEMOPTYSIS [None]
  - NAUSEA [None]
  - LEFT VENTRICULAR DYSFUNCTION [None]
  - HYPERHIDROSIS [None]
  - JOINT INJURY [None]
  - CHEST DISCOMFORT [None]
  - DYSPNOEA [None]
  - HYPOTENSION [None]
  - LEUKOCYTOSIS [None]
  - SYNCOPE [None]
  - MYOCARDIAL ISCHAEMIA [None]
  - FALL [None]
  - PNEUMONIA [None]
  - DIZZINESS [None]
  - COUGH [None]
